FAERS Safety Report 22207589 (Version 2)
Quarter: 2023Q2

REPORT INFORMATION
  Report Type: Report from Study
  Country: NL (occurrence: NL)
  Receive Date: 20230413
  Receipt Date: 20230510
  Transmission Date: 20230722
  Serious: Yes (Hospitalization, Other)
  Sender: FDA-Public Use
  Company Number: NL-CELLTRION INC.-2023NL007317

PATIENT

DRUGS (50)
  1. RITUXIMAB [Suspect]
     Active Substance: RITUXIMAB
     Indication: Diffuse large B-cell lymphoma stage I
     Dosage: 375 MILLIGRAM/SQ. METER, 1Q3W
     Route: 042
     Dates: start: 20221213, end: 20221213
  2. RITUXIMAB [Suspect]
     Active Substance: RITUXIMAB
     Dosage: 1400 MILLIGRAM, 1Q3W (TOTAL ADMINISTERED DOSE)
     Route: 058
     Dates: start: 20230207, end: 20230228
  3. RITUXIMAB [Suspect]
     Active Substance: RITUXIMAB
     Dosage: 1400 MILLIGRAM, 1Q3W
     Route: 058
     Dates: start: 20230103, end: 20230103
  4. RITUXIMAB [Suspect]
     Active Substance: RITUXIMAB
     Dosage: 1400 MILLIGRAM, C4D1, TOTAL ADMINISTERED DOSE
     Dates: start: 20230228
  5. RITUXIMAB [Suspect]
     Active Substance: RITUXIMAB
     Dosage: 1400 MILLIGRAM, 1Q3W
     Route: 058
     Dates: start: 20230324
  6. DOXORUBICIN [Suspect]
     Active Substance: DOXORUBICIN
     Indication: Diffuse large B-cell lymphoma stage I
     Dosage: 25 MILLIGRAM/SQ. METER, 1Q3W
     Route: 042
     Dates: start: 20230207, end: 20230228
  7. DOXORUBICIN [Suspect]
     Active Substance: DOXORUBICIN
     Dosage: 25 MILLIGRAM/SQ. METER, 1Q3W
     Route: 042
     Dates: start: 20221214, end: 20230103
  8. DOXORUBICIN [Suspect]
     Active Substance: DOXORUBICIN
     Dosage: 25 MILLIGRAM/SQ. METER, 1Q3W, SOLUTION FOR INFUSION
     Route: 042
     Dates: start: 20230324
  9. PREDNISOLONE [Suspect]
     Active Substance: PREDNISOLONE
     Indication: Diffuse large B-cell lymphoma stage I
     Dosage: 100 MILLIGRAM, QD
     Route: 048
     Dates: start: 20221213, end: 20221216
  10. PREDNISOLONE [Suspect]
     Active Substance: PREDNISOLONE
     Dosage: 100 MILLIGRAM, QD
     Route: 048
     Dates: start: 20221219, end: 20221222
  11. PREDNISOLONE [Suspect]
     Active Substance: PREDNISOLONE
     Dosage: 100 MILLIGRAM, QD
     Route: 048
     Dates: start: 20221227, end: 20221230
  12. PREDNISOLONE [Suspect]
     Active Substance: PREDNISOLONE
     Dosage: 100 MILLIGRAM, QD
     Route: 048
     Dates: start: 20230103, end: 20230107
  13. PREDNISOLONE [Suspect]
     Active Substance: PREDNISOLONE
     Dosage: 100 MILLIGRAM, QD, PARENTERAL
     Dates: start: 20230324
  14. CYCLOPHOSPHAMIDE [Suspect]
     Active Substance: CYCLOPHOSPHAMIDE
     Indication: Diffuse large B-cell lymphoma stage I
     Dosage: 400 MILLIGRAM/SQ. METER, 1Q3W; POWDER FOR SOLUTION FOR INJECTION
     Route: 042
     Dates: start: 20221213, end: 20230103
  15. CYCLOPHOSPHAMIDE [Suspect]
     Active Substance: CYCLOPHOSPHAMIDE
     Dosage: 400 MILLIGRAM/SQ. METER, 1Q3W; POWDER FOR SOLUTION FOR INJECTION
     Route: 042
     Dates: start: 20230207, end: 20230228
  16. CYCLOPHOSPHAMIDE [Suspect]
     Active Substance: CYCLOPHOSPHAMIDE
     Dosage: 400 MILLIGRAM/SQ. METER, 1Q3W, POWDER FOR SOLUTION FOR INJECTION
     Route: 042
     Dates: start: 20230324
  17. EPCORITAMAB [Suspect]
     Active Substance: EPCORITAMAB
     Indication: Diffuse large B-cell lymphoma stage I
     Dosage: PRIMING DOSE: 0.16 MILLIGRAM, SINGLE, DUOBODY-CD3XCD20
     Route: 058
     Dates: start: 20221212, end: 20221212
  18. EPCORITAMAB [Suspect]
     Active Substance: EPCORITAMAB
     Dosage: INTERMEDIATE DOSE: 0.8 MILLIGRAM, SINGLE, DUOBODY-CD3XCD20
     Route: 058
     Dates: start: 20221219, end: 20221219
  19. EPCORITAMAB [Suspect]
     Active Substance: EPCORITAMAB
     Dosage: FULL DOSE: 48 MILLIGRAM, WEEKLY C2D15, DUOBODY-CD3XCD20
     Route: 058
     Dates: start: 20221227, end: 20230117
  20. EPCORITAMAB [Suspect]
     Active Substance: EPCORITAMAB
     Dosage: FULL DOSE: 48 MILLIGRAM, 1Q3W; DUOBODY-CD3XCD20
     Route: 058
     Dates: start: 20230207, end: 20230228
  21. EPCORITAMAB [Suspect]
     Active Substance: EPCORITAMAB
     Dosage: FULL DOSE: 48 MILLIGRAM, 1Q3W, DUOBODY-CD3XCD20
     Route: 058
     Dates: start: 20230324
  22. VINCRISTINE SULFATE [Suspect]
     Active Substance: VINCRISTINE SULFATE
     Indication: Diffuse large B-cell lymphoma stage I
     Dosage: 1 MILLIGRAM/SQ. METER, 1Q3W
     Route: 042
     Dates: start: 20221212, end: 20230103
  23. VINCRISTINE SULFATE [Suspect]
     Active Substance: VINCRISTINE SULFATE
     Dosage: 1 MILLIGRAM/SQ. METER, 1Q3W
     Route: 042
     Dates: start: 20230207, end: 20230228
  24. VINCRISTINE SULFATE [Suspect]
     Active Substance: VINCRISTINE SULFATE
     Dosage: 1 MILLIGRAM/SQ. METER, 1Q3W
     Route: 042
     Dates: start: 20230324
  25. VINCRISTINE SULFATE [Suspect]
     Active Substance: VINCRISTINE SULFATE
     Dosage: 1 MILLIGRAM/SQ. METER, 1Q3W
     Dates: start: 20230228
  26. NYSTATIN [Concomitant]
     Active Substance: NYSTATIN
     Dosage: UNK
     Dates: start: 20221227, end: 20230123
  27. PREDNISOLONE SODIUM SUCCINATE [Concomitant]
     Active Substance: PREDNISOLONE SODIUM SUCCINATE
     Dosage: 100 MG
     Route: 042
     Dates: start: 20221212, end: 20221212
  28. PREDNISOLONE SODIUM SUCCINATE [Concomitant]
     Active Substance: PREDNISOLONE SODIUM SUCCINATE
     Dosage: 100 MG
     Route: 042
     Dates: start: 20230228, end: 20230301
  29. PREDNISOLONE SODIUM SUCCINATE [Concomitant]
     Active Substance: PREDNISOLONE SODIUM SUCCINATE
     Dosage: 100 MG, PARENTERAL
     Dates: start: 20230303, end: 20230304
  30. SOTALOL [Concomitant]
     Active Substance: SOTALOL
     Dosage: UNK
     Dates: start: 20220831, end: 20230124
  31. METOCLOPRAMIDE [Concomitant]
     Active Substance: METOCLOPRAMIDE
     Dosage: UNK
     Dates: start: 20221212, end: 20230123
  32. ACETAMINOPHEN [Concomitant]
     Active Substance: ACETAMINOPHEN
     Dosage: UNK
     Route: 048
     Dates: start: 20221212, end: 20230324
  33. ACETAMINOPHEN [Concomitant]
     Active Substance: ACETAMINOPHEN
     Dosage: UNK
     Dates: start: 20230306, end: 20230306
  34. CLEMASTINE [Concomitant]
     Active Substance: CLEMASTINE
     Dosage: UNK
     Route: 048
     Dates: start: 20221212, end: 20230324
  35. ROSUVASTATIN [Concomitant]
     Active Substance: ROSUVASTATIN
     Dosage: UNK
     Dates: start: 20220602
  36. LEVOCETIRIZINE [Concomitant]
     Active Substance: LEVOCETIRIZINE
     Dosage: 5 MG
     Route: 048
     Dates: start: 20230103, end: 20230228
  37. ALLOPURINOL [Concomitant]
     Active Substance: ALLOPURINOL
     Dosage: UNK
     Dates: start: 20221212, end: 20221222
  38. PANTOPRAZOLE [Concomitant]
     Active Substance: PANTOPRAZOLE
     Dosage: UNK
     Dates: start: 20221219, end: 20230128
  39. POTASSIUM PHOSPHATE DIBASIC;SODIUM [Concomitant]
     Dosage: UNK
     Dates: start: 20221228, end: 20221228
  40. MOVICOLON [Concomitant]
     Active Substance: POLYETHYLENE GLYCOL 3350\POTASSIUM CHLORIDE\SODIUM BICARBONATE\SODIUM CHLORIDE
     Dosage: UNK
     Dates: start: 20221213, end: 20230123
  41. CODEINE [Concomitant]
     Active Substance: CODEINE
     Dosage: UNK
     Dates: start: 20230207
  42. OMEPRAZOLE [Concomitant]
     Active Substance: OMEPRAZOLE
     Dosage: UNK
     Dates: start: 20230207, end: 20230221
  43. GRANISETRON [Concomitant]
     Active Substance: GRANISETRON
     Dosage: UNK
     Dates: start: 20230207, end: 20230207
  44. ESOMEPRAZOLE [Concomitant]
     Active Substance: ESOMEPRAZOLE
     Dosage: UNK
     Dates: start: 20230223
  45. PRIMPERAN [Concomitant]
     Active Substance: METOCLOPRAMIDE HYDROCHLORIDE
     Dosage: UNK
     Dates: start: 20230227, end: 20230302
  46. PREDNISOLONE [Concomitant]
     Active Substance: PREDNISOLONE
     Dosage: 80 MG, NUTRITION TUBE
     Dates: start: 20230207, end: 20230212
  47. PREDNISOLONE [Concomitant]
     Active Substance: PREDNISOLONE
     Dosage: 200 MG
     Route: 048
     Dates: start: 20221219, end: 20221222
  48. PREDNISOLONE [Concomitant]
     Active Substance: PREDNISOLONE
     Dosage: 200 MG
     Route: 048
     Dates: start: 20221227, end: 20221230
  49. SODIUM LAURYL SULFATE;SORBITOL [Concomitant]
     Dosage: UNK
     Dates: start: 20230228, end: 20230228
  50. NADROPARIN [Concomitant]
     Active Substance: NADROPARIN
     Dosage: UNK
     Dates: start: 20230227, end: 20230305

REACTIONS (7)
  - Pyloric stenosis [Recovered/Resolved]
  - Device dislocation [Recovered/Resolved with Sequelae]
  - Procedural vomiting [Not Recovered/Not Resolved]
  - Candida infection [Recovered/Resolved]
  - Vomiting [Recovered/Resolved]
  - Vomiting [Not Recovered/Not Resolved]
  - Intentional product use issue [Unknown]

NARRATIVE: CASE EVENT DATE: 20230103
